FAERS Safety Report 12165811 (Version 2)
Quarter: 2016Q1

REPORT INFORMATION
  Report Type: Spontaneous
  Country: GB (occurrence: GB)
  Receive Date: 20160309
  Receipt Date: 20160310
  Transmission Date: 20160526
  Serious: Yes (Hospitalization, Other)
  Sender: FDA-Public Use
  Company Number: GB-ACTAVIS-2016-04973

PATIENT
  Age: 81 Year
  Sex: Female

DRUGS (1)
  1. SPIRONOLACTONE (UNKNOWN) [Suspect]
     Active Substance: SPIRONOLACTONE
     Indication: PULMONARY OEDEMA
     Dosage: 25 MG, UNKNOWN
     Route: 048
     Dates: start: 20160210, end: 20160222

REACTIONS (1)
  - Hyponatraemia [Recovering/Resolving]
